FAERS Safety Report 14653412 (Version 2)
Quarter: 2018Q1

REPORT INFORMATION
  Report Type: Spontaneous
  Country: US (occurrence: US)
  Receive Date: 20180319
  Receipt Date: 20180325
  Transmission Date: 20180509
  Serious: No
  Sender: FDA-Public Use
  Company Number: US-JNJFOC-20180304484

PATIENT
  Age: 83 Year
  Sex: Female
  Weight: 75.75 kg

DRUGS (2)
  1. XARELTO [Suspect]
     Active Substance: RIVAROXABAN
     Indication: ANTICOAGULANT THERAPY
     Route: 048
  2. XARELTO [Suspect]
     Active Substance: RIVAROXABAN
     Indication: ANTICOAGULANT THERAPY
     Route: 048
     Dates: start: 20180225, end: 201802

REACTIONS (7)
  - Gingival pain [Recovered/Resolved]
  - Product label issue [Unknown]
  - Gingival bleeding [Recovered/Resolved]
  - Vaginal discharge [Recovered/Resolved]
  - Drug diversion [Unknown]
  - Epistaxis [Recovered/Resolved]
  - Chromaturia [Recovered/Resolved]

NARRATIVE: CASE EVENT DATE: 201802
